FAERS Safety Report 12228519 (Version 1)
Quarter: 2016Q1

REPORT INFORMATION
  Report Type: Spontaneous
  Country: US (occurrence: None)
  Receive Date: 20160331
  Receipt Date: 20160331
  Transmission Date: 20160526
  Serious: No
  Sender: FDA-Public Use
  Company Number: None

PATIENT

DRUGS (3)
  1. NOVOLOG [Suspect]
     Active Substance: INSULIN ASPART
  2. GLEEVEC [Concomitant]
     Active Substance: IMATINIB MESYLATE
  3. CORVIDA [Concomitant]

REACTIONS (2)
  - Infection [None]
  - Neoplasm malignant [None]
